FAERS Safety Report 25194452 (Version 1)
Quarter: 2025Q2

REPORT INFORMATION
  Report Type: Spontaneous
  Country: GB (occurrence: GB)
  Receive Date: 20250414
  Receipt Date: 20250414
  Transmission Date: 20250716
  Serious: Yes (Other)
  Sender: PURDUE
  Company Number: GB-PURDUE-USA-2025-0316761

PATIENT
  Age: 73 Year
  Sex: Female

DRUGS (1)
  1. BUPRENORPHINE [Suspect]
     Active Substance: BUPRENORPHINE
     Indication: Adverse drug reaction
     Route: 065
     Dates: start: 20250327

REACTIONS (1)
  - Swollen joint count [Not Recovered/Not Resolved]

NARRATIVE: CASE EVENT DATE: 20250408
